FAERS Safety Report 9369336 (Version 1)
Quarter: 2013Q2

REPORT INFORMATION
  Report Type: Spontaneous
  Country: US (occurrence: US)
  Receive Date: 20130626
  Receipt Date: 20130626
  Transmission Date: 20140414
  Serious: Yes (Hospitalization)
  Sender: FDA-Public Use
  Company Number: US-BAYER-2013-078205

PATIENT
  Age: 38 Year
  Sex: Female

DRUGS (11)
  1. YAZ [Suspect]
  2. YASMIN [Suspect]
  3. OCELLA [Suspect]
  4. ALPRAZOLAM [Concomitant]
     Dosage: UNK
     Dates: start: 20120203
  5. TYLENOL 1 [Concomitant]
     Dosage: UNK
     Dates: start: 20120203
  6. LAMOTRIGINE [Concomitant]
     Dosage: UNK
     Dates: start: 20120203
  7. PERCOCET [Concomitant]
     Dosage: UNK
     Dates: start: 20120203
  8. NEFAZODONE HCL [Concomitant]
     Dosage: UNK
     Dates: start: 20120203
  9. ZANTAC [Concomitant]
     Dosage: UNK
     Dates: start: 20120203
  10. OXYCODONE/APAP [Concomitant]
     Dosage: 5/3
     Dates: start: 20120203
  11. PROMETHAZINE [Concomitant]
     Dosage: 12.5 MG, UNK
     Dates: start: 20120111

REACTIONS (1)
  - Pulmonary embolism [Recovered/Resolved]
